FAERS Safety Report 8067731-6 (Version None)
Quarter: 2012Q1

REPORT INFORMATION
  Report Type: 
  Country: None (occurrence: None)
  Receive Date: 20120124
  Receipt Date: 20120118
  Transmission Date: 20120608
  Serious: Yes (Other)
  Sender: FDA-Public Use
  Company Number: IT-BAYER-2012-005916

PATIENT
  Age: 66 Year
  Sex: Male

DRUGS (3)
  1. ADALAT [Concomitant]
     Route: 048
  2. URODIE [Concomitant]
     Route: 048
  3. ASPIRIN [Suspect]
     Indication: PLATELET AGGREGATION INHIBITION
     Dosage: 100 MG, QD
     Route: 048
     Dates: start: 20111216, end: 20120106

REACTIONS (3)
  - RASH PAPULAR [None]
  - PRURITUS [None]
  - VASCULITIS [None]
